FAERS Safety Report 5114659-7 (Version None)
Quarter: 2006Q3

REPORT INFORMATION
  Report Type: 
  Country: None (occurrence: None)
  Receive Date: 20060926
  Receipt Date: 20060914
  Transmission Date: 20061208
  Serious: Yes (Death)
  Sender: FDA-Public Use
  Company Number: US-JNJFOC-20040802648

PATIENT
  Sex: Female
  Weight: 70.31 kg

DRUGS (10)
  1. REMICADE [Suspect]
     Indication: RHEUMATOID ARTHRITIS
     Route: 042
  2. PREDNISONE TAB [Concomitant]
  3. METHOTREXATE [Concomitant]
  4. MOBIC [Concomitant]
  5. RYTHMOL [Concomitant]
  6. LOTREL [Concomitant]
  7. ATENOLOL [Concomitant]
  8. TYLENOL [Concomitant]
  9. CALTRATE [Concomitant]
  10. TYLENOL SINUS 500 [Concomitant]

REACTIONS (3)
  - BONE NEOPLASM MALIGNANT [None]
  - DEATH [None]
  - NEOPLASM MALIGNANT [None]
